FAERS Safety Report 7985221-3 (Version None)
Quarter: 2011Q4

REPORT INFORMATION
  Report Type: 
  Country: None (occurrence: None)
  Receive Date: 20111216
  Receipt Date: 20100513
  Transmission Date: 20120403
  Serious: No
  Sender: FDA-Public Use
  Company Number: PHBS2009IT00592

PATIENT
  Age: 43 Year
  Sex: Female
  Weight: 101 kg

DRUGS (1)
  1. OXCARBAZEPINE [Suspect]
     Indication: BED REST
     Dosage: 1200 MG, DAILY
     Dates: start: 20070101

REACTIONS (3)
  - ASTHENIA [None]
  - CONFUSIONAL STATE [None]
  - SOMNOLENCE [None]
